FAERS Safety Report 9218061 (Version 7)
Quarter: 2014Q3

REPORT INFORMATION
  Report Type: Spontaneous
  Country: US (occurrence: US)
  Receive Date: 20130408
  Receipt Date: 20140815
  Transmission Date: 20150326
  Serious: Yes (Hospitalization, Disabling, Other)
  Sender: FDA-Public Use
  Company Number: US-009507513-1304USA000985

PATIENT
  Sex: Female
  Weight: 97.96 kg

DRUGS (5)
  1. NUVARING [Suspect]
     Active Substance: ETHINYL ESTRADIOL\ETONOGESTREL
     Dosage: UNK
     Route: 067
     Dates: start: 20110718, end: 201108
  2. NUVARING [Suspect]
     Active Substance: ETHINYL ESTRADIOL\ETONOGESTREL
     Dosage: UNK
     Route: 067
     Dates: start: 20070326, end: 200709
  3. NUVARING [Suspect]
     Active Substance: ETHINYL ESTRADIOL\ETONOGESTREL
     Dosage: UNK
     Route: 067
     Dates: start: 20110420, end: 20110717
  4. NUVARING [Suspect]
     Active Substance: ETHINYL ESTRADIOL\ETONOGESTREL
     Indication: CONTRACEPTION
     Dosage: 0.12/0.015, UNK
     Route: 067
     Dates: start: 20060125, end: 200604
  5. NUVARING [Suspect]
     Active Substance: ETHINYL ESTRADIOL\ETONOGESTREL
     Dosage: UNK
     Route: 067
     Dates: start: 20100513, end: 201008

REACTIONS (26)
  - Pulmonary infarction [Unknown]
  - Tachycardia [Unknown]
  - Colitis [Unknown]
  - Abortion spontaneous [Unknown]
  - Renal vein thrombosis [Recovered/Resolved]
  - Maternal exposure before pregnancy [Unknown]
  - Arteriovenous fistula [Unknown]
  - Deep vein thrombosis [Unknown]
  - Drug abuse [Unknown]
  - Arthralgia [Unknown]
  - Skin neoplasm excision [Unknown]
  - Piriformis syndrome [Unknown]
  - International normalised ratio decreased [Unknown]
  - Pleural effusion [Unknown]
  - Bipolar disorder [Recovering/Resolving]
  - Non-cardiac chest pain [Unknown]
  - Constipation [Unknown]
  - Blood urine present [Unknown]
  - Pulmonary embolism [Recovered/Resolved]
  - Melanocytic naevus [Unknown]
  - Menstrual disorder [Unknown]
  - Headache [Unknown]
  - Therapeutic response delayed [Unknown]
  - Anticoagulation drug level below therapeutic [Unknown]
  - Lung infiltration [Unknown]
  - Flank pain [Unknown]

NARRATIVE: CASE EVENT DATE: 20060125
